FAERS Safety Report 10183357 (Version 2)
Quarter: 2014Q2

REPORT INFORMATION
  Report Type: Spontaneous
  Country: PL (occurrence: PL)
  Receive Date: 20140520
  Receipt Date: 20140520
  Transmission Date: 20141212
  Serious: Yes (Death)
  Sender: FDA-Public Use
  Company Number: PL-PFIZER INC-2014085785

PATIENT
  Sex: Male

DRUGS (19)
  1. CARDURA [Suspect]
     Dosage: UNK
  2. FINXTA [Suspect]
     Dosage: UNK
  3. SYMLOSIN SR [Concomitant]
     Dosage: UNK
  4. CONTROLOC [Concomitant]
     Dosage: UNK
  5. TORAMIDE [Concomitant]
     Indication: DYSURIA
     Dosage: UNK
  6. SPIRIVA [Concomitant]
     Indication: LUNG DISORDER
     Dosage: UNK
  7. SERETIDE [Concomitant]
     Indication: LUNG DISORDER
     Dosage: UNK
  8. CONCOR [Concomitant]
     Indication: CARDIAC DISORDER
     Dosage: UNK
  9. THEOSPIREX [Concomitant]
     Dosage: UNK
  10. SEDAM [Concomitant]
     Indication: INSOMNIA
     Dosage: UNK
  11. SYLIMAROL [Concomitant]
     Indication: FLATULENCE
     Dosage: UNK
  12. ESSENTIALE [Concomitant]
     Indication: FLATULENCE
     Dosage: UNK
  13. BUSCOPAN [Concomitant]
     Indication: FLATULENCE
     Dosage: UNK
  14. SPASMOLINA [Concomitant]
     Indication: FLATULENCE
     Dosage: UNK
  15. VENTOLIN [Concomitant]
     Indication: LUNG DISORDER
  16. ERDOMED [Concomitant]
     Indication: LUNG DISORDER
     Dosage: UNK
  17. DEFLEGMIN [Concomitant]
     Indication: LUNG DISORDER
     Dosage: UNK
  18. METYPRED [Concomitant]
     Indication: LUNG DISORDER
     Dosage: UNK
  19. ZINOXX [Concomitant]
     Indication: LUNG DISORDER
     Dosage: UNK

REACTIONS (7)
  - Death [Fatal]
  - Dyspnoea [Unknown]
  - Dry mouth [Unknown]
  - Rhinorrhoea [Unknown]
  - Functional gastrointestinal disorder [Unknown]
  - Tinnitus [Unknown]
  - Flatulence [Unknown]
